FAERS Safety Report 5803655-X (Version None)
Quarter: 2008Q3

REPORT INFORMATION
  Report Type: 
  Country: None (occurrence: None)
  Receive Date: 20080708
  Receipt Date: 20070730
  Transmission Date: 20090109
  Serious: No
  Sender: FDA-Public Use
  Company Number: US-AMGEN-KDL236711

PATIENT
  Sex: Female

DRUGS (3)
  1. KINERET [Suspect]
     Indication: RHEUMATOID ARTHRITIS
     Route: 058
     Dates: start: 20070630
  2. KINERET [Suspect]
     Indication: SCLERODERMA
  3. METHOTREXATE [Concomitant]
     Route: 048
     Dates: start: 20060801

REACTIONS (6)
  - INITIAL INSOMNIA [None]
  - INJECTION SITE INDURATION [None]
  - INJECTION SITE PRURITUS [None]
  - INJECTION SITE RASH [None]
  - INJECTION SITE WARMTH [None]
  - POOR QUALITY SLEEP [None]
